FAERS Safety Report 6526822-9 (Version None)
Quarter: 2010Q1

REPORT INFORMATION
  Report Type: 
  Country: None (occurrence: None)
  Receive Date: 20100105
  Receipt Date: 20091228
  Transmission Date: 20100710
  Serious: Yes (Hospitalization)
  Sender: FDA-Public Use
  Company Number: FR-PURDUE-GBR-2009-0005989

PATIENT
  Sex: Male

DRUGS (6)
  1. OXYCONTIN [Suspect]
     Indication: DRUG USE FOR UNKNOWN INDICATION
     Dosage: 1 DF, DAILY
     Route: 048
     Dates: start: 20091201
  2. REVIA [Interacting]
     Indication: DRUG USE FOR UNKNOWN INDICATION
     Dosage: 1 DF, SINGLE
     Route: 048
     Dates: start: 20091209
  3. DURAGESIC-100 [Interacting]
     Indication: DRUG USE FOR UNKNOWN INDICATION
     Dosage: 50 MCG, Q1H
     Route: 003
     Dates: start: 20091201
  4. NICOTINE [Concomitant]
     Dosage: UNK PATCH, UNK
  5. PRAZEPAM [Concomitant]
     Dosage: 10 DROP, UNK
  6. AOTAL [Concomitant]
     Indication: ALCOHOL WITHDRAWAL SYNDROME
     Dosage: UNK
     Dates: start: 20091208

REACTIONS (6)
  - AGITATION [None]
  - DIARRHOEA [None]
  - DRUG WITHDRAWAL SYNDROME [None]
  - DRY MOUTH [None]
  - INCREASED BRONCHIAL SECRETION [None]
  - TREMOR [None]
